FAERS Safety Report 6863932-0 (Version None)
Quarter: 2010Q3

REPORT INFORMATION
  Report Type: 
  Country: None (occurrence: None)
  Receive Date: 20100721
  Receipt Date: 20080317
  Transmission Date: 20110219
  Serious: Yes (Other)
  Sender: FDA-Public Use
  Company Number: US-PFIZER INC-2008024200

PATIENT
  Sex: Male
  Weight: 108.9 kg

DRUGS (3)
  1. CHANTIX [Suspect]
     Indication: SMOKING CESSATION THERAPY
     Dates: start: 20071201
  2. CARDIOVASCULAR SYSTEM DRUGS [Concomitant]
     Indication: BLOOD PRESSURE
     Dates: start: 20040101
  3. ALL OTHER THERAPEUTIC PRODUCTS [Concomitant]
     Indication: EMPHYSEMA
     Dates: start: 20040101

REACTIONS (2)
  - DEPRESSION [None]
  - SUICIDAL IDEATION [None]
